FAERS Safety Report 18857164 (Version 7)
Quarter: 2021Q4

REPORT INFORMATION
  Report Type: Spontaneous
  Country: JP (occurrence: JP)
  Receive Date: 20210208
  Receipt Date: 20211110
  Transmission Date: 20220303
  Serious: Yes (Death, Hospitalization)
  Sender: FDA-Public Use
  Company Number: JP-ONO-2021JP002647

PATIENT
  Age: 79 Year
  Sex: Male
  Weight: 60.5 kg

DRUGS (26)
  1. PARSABIV [Suspect]
     Active Substance: ETELCALCETIDE HYDROCHLORIDE
     Indication: Hyperparathyroidism secondary
     Dosage: 5 MILLIGRAM, QWK
     Route: 010
     Dates: start: 20190713, end: 20190713
  2. PARSABIV [Suspect]
     Active Substance: ETELCALCETIDE HYDROCHLORIDE
     Dosage: 2.5 MILLIGRAM, Q2MO
     Route: 010
     Dates: start: 20190727
  3. PARSABIV [Suspect]
     Active Substance: ETELCALCETIDE HYDROCHLORIDE
     Dosage: 5 MILLIGRAM
     Route: 010
     Dates: start: 20190720
  4. CAMOSTAT MESYLATE [Suspect]
     Active Substance: CAMOSTAT MESYLATE
     Indication: COVID-19
     Dosage: UNK
     Route: 048
     Dates: start: 20201227
  5. MIRCERA [Concomitant]
     Active Substance: METHOXY POLYETHYLENE GLYCOL-EPOETIN BETA
     Dosage: 25 UG, QW
     Route: 065
     Dates: start: 20180630, end: 20180721
  6. MIRCERA [Concomitant]
     Active Substance: METHOXY POLYETHYLENE GLYCOL-EPOETIN BETA
     Dosage: 125 UG, MONTHLY
     Route: 065
     Dates: start: 20180728, end: 20190202
  7. MIRCERA [Concomitant]
     Active Substance: METHOXY POLYETHYLENE GLYCOL-EPOETIN BETA
     Dosage: 50 UG, EVERYDAY
     Route: 065
     Dates: start: 20190209, end: 20190209
  8. MIRCERA [Concomitant]
     Active Substance: METHOXY POLYETHYLENE GLYCOL-EPOETIN BETA
     Dosage: 25 UG, QW
     Route: 065
     Dates: start: 20190216, end: 20190223
  9. MIRCERA [Concomitant]
     Active Substance: METHOXY POLYETHYLENE GLYCOL-EPOETIN BETA
     Dosage: 150 UG, MONTHLY
     Route: 065
     Dates: start: 20190302, end: 20190413
  10. MIRCERA [Concomitant]
     Active Substance: METHOXY POLYETHYLENE GLYCOL-EPOETIN BETA
     Dosage: 50 UG, QW
     Route: 065
     Dates: start: 20190420, end: 20190511
  11. MIRCERA [Concomitant]
     Active Substance: METHOXY POLYETHYLENE GLYCOL-EPOETIN BETA
     Dosage: 225 UG, MONTHLY
     Route: 065
     Dates: start: 20190518, end: 20190928
  12. MIRCERA [Concomitant]
     Active Substance: METHOXY POLYETHYLENE GLYCOL-EPOETIN BETA
     Dosage: 50 UG, QW
     Route: 065
     Dates: start: 20191005, end: 20191019
  13. MIRCERA [Concomitant]
     Active Substance: METHOXY POLYETHYLENE GLYCOL-EPOETIN BETA
     Dosage: 25 UG, QW
     Route: 065
     Dates: start: 20191026, end: 20191026
  14. MIRCERA [Concomitant]
     Active Substance: METHOXY POLYETHYLENE GLYCOL-EPOETIN BETA
     Dosage: 50 UG, EVERYDAY
     Route: 065
     Dates: start: 20191102, end: 20191102
  15. MIRCERA [Concomitant]
     Active Substance: METHOXY POLYETHYLENE GLYCOL-EPOETIN BETA
     Dosage: 25 UG, EVERYDAY
     Route: 065
     Dates: start: 20191109, end: 20191109
  16. MIRCERA [Concomitant]
     Active Substance: METHOXY POLYETHYLENE GLYCOL-EPOETIN BETA
     Dosage: 33.3 UG, QW
     Route: 065
     Dates: start: 20191116, end: 20201121
  17. MIRCERA [Concomitant]
     Active Substance: METHOXY POLYETHYLENE GLYCOL-EPOETIN BETA
     Dosage: 31.25 UG, QW
     Route: 065
     Dates: start: 20201128, end: 20201219
  18. MIRCERA [Concomitant]
     Active Substance: METHOXY POLYETHYLENE GLYCOL-EPOETIN BETA
     Dosage: 25 UG, EVERYDAY
     Route: 065
     Dates: start: 20201226, end: 20201226
  19. ROCALTROL [Concomitant]
     Active Substance: CALCITRIOL
     Dosage: 0.5 MICROGRAM, QWK
     Route: 042
     Dates: start: 20191214, end: 20200104
  20. ROCALTROL [Concomitant]
     Active Substance: CALCITRIOL
     Dosage: 1.0 UG, QW
     Route: 042
     Dates: start: 20200111, end: 20200208
  21. ROCALTROL [Concomitant]
     Active Substance: CALCITRIOL
     Dosage: 1.25 UG, QW
     Route: 042
     Dates: start: 20200215, end: 20200307
  22. ROCALTROL [Concomitant]
     Active Substance: CALCITRIOL
     Dosage: 1.5 UG, QW
     Route: 042
     Dates: start: 20200314, end: 20200321
  23. ROCALTROL [Concomitant]
     Active Substance: CALCITRIOL
     Dosage: 1.375 UG, QW
     Route: 042
     Dates: start: 20200328, end: 20201226
  24. ELDECALCITOL [Concomitant]
     Active Substance: ELDECALCITOL
     Dosage: UNK
     Route: 065
     Dates: end: 20190321
  25. ELDECALCITOL [Concomitant]
     Active Substance: ELDECALCITOL
     Dosage: UNK
     Route: 065
     Dates: start: 20191116
  26. SODIUM FERROUS CITRATE [Concomitant]
     Active Substance: SODIUM FERROUS CITRATE
     Dosage: 100 MG, EVERYDAY
     Route: 065
     Dates: start: 20190615

REACTIONS (2)
  - COVID-19 [Fatal]
  - Off label use [Unknown]

NARRATIVE: CASE EVENT DATE: 20201227
